FAERS Safety Report 7906844-3 (Version None)
Quarter: 2011Q4

REPORT INFORMATION
  Report Type: 
  Country: None (occurrence: None)
  Receive Date: 20111109
  Receipt Date: 20111109
  Transmission Date: 20120403
  Serious: No
  Sender: FDA-Public Use
  Company Number: None

PATIENT
  Age: 30 Year
  Sex: Female
  Weight: 123.6 kg

DRUGS (11)
  1. WELLBUTRIN XL [Concomitant]
  2. VICODIN [Concomitant]
  3. KETOROLAC TROMETHAMINE [Concomitant]
  4. QVAR 40 [Concomitant]
  5. INVEGA SUSTENNA [Suspect]
     Indication: BIPOLAR DISORDER
     Dosage: 234 MG INVEGA SUSTENNA 1 EVERY 4 WEEKS IM
     Route: 030
     Dates: start: 20110805, end: 20111107
  6. REQUIP [Concomitant]
  7. KLONOPIN [Concomitant]
  8. CARBATROL [Concomitant]
  9. LAMICTAL [Concomitant]
  10. ALBUTEROL [Concomitant]
  11. MINIPRESS [Concomitant]

REACTIONS (2)
  - INJECTION SITE PAIN [None]
  - INJECTION SITE ERYTHEMA [None]
